FAERS Safety Report 6113635-5 (Version None)
Quarter: 2009Q1

REPORT INFORMATION
  Report Type: 
  Country: None (occurrence: None)
  Receive Date: 20090312
  Receipt Date: 20090304
  Transmission Date: 20090719
  Serious: Yes (Hospitalization)
  Sender: FDA-Public Use
  Company Number: UA-ABBOTT-09P-269-0560631-00

PATIENT
  Age: 43 Year
  Sex: Female
  Weight: 106 kg

DRUGS (1)
  1. MERIDIA [Suspect]
     Indication: OBESITY
     Route: 048

REACTIONS (2)
  - BLOOD PRESSURE INCREASED [None]
  - THROMBOSIS [None]
